FAERS Safety Report 14934544 (Version 4)
Quarter: 2019Q2

REPORT INFORMATION
  Report Type: Report from Study
  Country: US (occurrence: US)
  Receive Date: 20180524
  Receipt Date: 20190418
  Transmission Date: 20190711
  Serious: Yes (Hospitalization, Other)
  Sender: FDA-Public Use
  Company Number: US-AMGEN-USASL2018067167

PATIENT
  Age: 79 Year
  Sex: Male

DRUGS (7)
  1. REPATHA [Suspect]
     Active Substance: EVOLOCUMAB
     Indication: HYPERCHOLESTEROLAEMIA
     Dosage: 140 MG, Q2WK
     Route: 065
     Dates: start: 20180201
  2. COUMADIN [Concomitant]
     Active Substance: WARFARIN SODIUM
     Indication: ATRIAL FIBRILLATION
  3. WARFARIN [Concomitant]
     Active Substance: WARFARIN
     Indication: HYPERTENSION
     Dosage: UNK
  4. BABY ASPIRIN [Concomitant]
     Active Substance: ASPIRIN
     Dosage: UNK
  5. FISH OIL [Concomitant]
     Active Substance: FISH OIL
     Dosage: UNK
  6. TRICOR [Concomitant]
     Active Substance: FENOFIBRATE
     Dosage: UNK
  7. REPATHA [Suspect]
     Active Substance: EVOLOCUMAB
     Indication: BLOOD CHOLESTEROL ABNORMAL

REACTIONS (13)
  - Cholelithiasis [Unknown]
  - Defaecation urgency [Unknown]
  - Nasopharyngitis [Unknown]
  - Feeling abnormal [Unknown]
  - Musculoskeletal pain [Not Recovered/Not Resolved]
  - Dizziness [Unknown]
  - Blood pressure increased [Unknown]
  - Back pain [Not Recovered/Not Resolved]
  - Pancreatitis [Unknown]
  - Malaise [Unknown]
  - Aortic aneurysm [Unknown]
  - Stent-graft endoleak [Unknown]
  - Nausea [Unknown]

NARRATIVE: CASE EVENT DATE: 2018
